FAERS Safety Report 7249906-9 (Version None)
Quarter: 2011Q1

REPORT INFORMATION
  Report Type: 
  Country: None (occurrence: None)
  Receive Date: 20110128
  Receipt Date: 20100726
  Transmission Date: 20110831
  Serious: No
  Sender: FDA-Public Use
  Company Number: A0877781A

PATIENT
  Sex: Female

DRUGS (2)
  1. BUPROPION HCL [Suspect]
     Dosage: 150MG PER DAY
     Dates: start: 20070101
  2. NO CONCURRENT MEDICATION [Concomitant]

REACTIONS (5)
  - PRODUCT QUALITY ISSUE [None]
  - MIGRAINE [None]
  - DRUG INEFFECTIVE [None]
  - LISTLESS [None]
  - FEELING ABNORMAL [None]
